FAERS Safety Report 5202466-6 (Version None)
Quarter: 2007Q1

REPORT INFORMATION
  Report Type: 
  Country: None (occurrence: None)
  Receive Date: 20070109
  Receipt Date: 20061227
  Transmission Date: 20070707
  Serious: Yes (Other)
  Sender: FDA-Public Use
  Company Number: PHBS2006JP20189

PATIENT
  Sex: Female

DRUGS (4)
  1. NEORAL [Suspect]
     Indication: MYASTHENIA GRAVIS
     Dosage: 150 MG/D
     Route: 048
     Dates: start: 20061221, end: 20061226
  2. EUGLUCON [Concomitant]
     Indication: DIABETES MELLITUS
  3. MELBIN [Concomitant]
  4. BASEN [Concomitant]
     Indication: DIABETES MELLITUS

REACTIONS (4)
  - BLOOD CREATININE ABNORMAL [None]
  - HYPOGLYCAEMIA [None]
  - HYPONATRAEMIA [None]
  - RENAL DISORDER [None]
